FAERS Safety Report 25038762 (Version 1)
Quarter: 2025Q1

REPORT INFORMATION
  Report Type: Spontaneous
  Country: US (occurrence: US)
  Receive Date: 20250304
  Receipt Date: 20250304
  Transmission Date: 20250408
  Serious: Yes (Other)
  Sender: NOVO NORDISK
  Company Number: US-NOVOPROD-1380166

PATIENT
  Age: 62 Year
  Sex: Male

DRUGS (1)
  1. OZEMPIC [Suspect]
     Active Substance: SEMAGLUTIDE
     Indication: Product used for unknown indication
     Dosage: 0.5 MG QW
     Route: 058
     Dates: start: 202410, end: 20241214

REACTIONS (8)
  - Renal stone removal [Recovered/Resolved]
  - Knee arthroplasty [Recovered/Resolved]
  - Knee arthroplasty [Not Recovered/Not Resolved]
  - Unevaluable event [Not Recovered/Not Resolved]
  - Food aversion [Unknown]
  - Abdominal distension [Unknown]
  - Dizziness [Not Recovered/Not Resolved]
  - Nausea [Not Recovered/Not Resolved]

NARRATIVE: CASE EVENT DATE: 20241101
